FAERS Safety Report 25201269 (Version 4)
Quarter: 2025Q2

REPORT INFORMATION
  Report Type: Spontaneous
  Country: PL (occurrence: PL)
  Receive Date: 20250416
  Receipt Date: 20250630
  Transmission Date: 20250717
  Serious: Yes (Hospitalization, Other)
  Sender: CELLTRION
  Company Number: PL-ROCHE-10000105669

PATIENT

DRUGS (12)
  1. RITUXIMAB [Suspect]
     Active Substance: RITUXIMAB
     Indication: Chronic lymphocytic leukaemia
     Route: 042
     Dates: start: 20230509, end: 20230926
  2. VENCLEXTA [Suspect]
     Active Substance: VENETOCLAX
     Indication: Chronic lymphocytic leukaemia
     Route: 048
     Dates: start: 20230509, end: 20240926
  3. PIRTOBRUTINIB [Suspect]
     Active Substance: PIRTOBRUTINIB
     Indication: Chronic lymphocytic leukaemia
     Route: 048
     Dates: start: 20230509, end: 20240926
  4. ACYCLOVIR [Concomitant]
     Active Substance: ACYCLOVIR
     Dates: start: 2012
  5. ACYCLOVIR [Concomitant]
     Active Substance: ACYCLOVIR
     Dates: start: 20200715
  6. ASPIRIN [Concomitant]
     Active Substance: ASPIRIN
     Dates: start: 20200715
  7. ACURENAL [Concomitant]
     Indication: Hypertension
     Dates: start: 2015
  8. BISEPTOL [Concomitant]
     Active Substance: SULFAMETHOXAZOLE\TRIMETHOPRIM
     Dates: start: 20230509
  9. FERROUS SULFATE [Concomitant]
     Active Substance: FERROUS SULFATE
     Dates: start: 20231219
  10. NORFLOXACIN [Concomitant]
     Active Substance: NORFLOXACIN
     Indication: Urinary tract infection
     Dates: start: 20240827
  11. CEFTRIAXONE [Concomitant]
     Active Substance: CEFTRIAXONE
  12. GENTAMICIN [Concomitant]
     Active Substance: GENTAMICIN

REACTIONS (1)
  - Squamous cell carcinoma of lung [Recovered/Resolved]

NARRATIVE: CASE EVENT DATE: 20240926
